FAERS Safety Report 4414037-X (Version None)
Quarter: 2004Q3

REPORT INFORMATION
  Report Type: 
  Country: None (occurrence: None)
  Receive Date: 20040803
  Receipt Date: 20040316
  Transmission Date: 20050211
  Serious: Yes (Other)
  Sender: FDA-Public Use
  Company Number: JP-GLAXOSMITHKLINE-B0327083A

PATIENT
  Age: 49 Year
  Sex: Male
  Weight: 58 kg

DRUGS (5)
  1. PAXIL [Suspect]
     Indication: DEPRESSION
     Dosage: 20MG PER DAY
     Route: 048
     Dates: start: 20040304, end: 20040315
  2. RISPERDAL [Suspect]
     Route: 048
  3. LIMAS [Concomitant]
     Route: 048
  4. SILECE [Concomitant]
     Dosage: 2MG PER DAY
     Route: 048
  5. LENDORM [Concomitant]
     Dosage: .25MG PER DAY
     Route: 048

REACTIONS (7)
  - AGITATION [None]
  - DEPRESSED MOOD [None]
  - HYPERHIDROSIS [None]
  - INSOMNIA [None]
  - MUSCLE RIGIDITY [None]
  - SEROTONIN SYNDROME [None]
  - TREMOR [None]
